FAERS Safety Report 7745700-0 (Version None)
Quarter: 2011Q3

REPORT INFORMATION
  Report Type: 
  Country: None (occurrence: None)
  Receive Date: 20110913
  Receipt Date: 20110909
  Transmission Date: 20111222
  Serious: No
  Sender: FDA-Public Use
  Company Number: JP-BAYER-2011-061463

PATIENT
  Age: 77 Year
  Sex: Male
  Weight: 52 kg

DRUGS (9)
  1. LEVOTHYROXINE SODIUM [Concomitant]
     Indication: HYPOTHYROIDISM
     Dosage: 100 ?G, UNK
     Route: 048
     Dates: start: 20110615
  2. MYONAL [Concomitant]
     Indication: NEURALGIA
     Dosage: 50 MG, TID
     Route: 048
     Dates: start: 20110520, end: 20110603
  3. NEUROTROPIN [Concomitant]
     Indication: NEURALGIA
     Dosage: 3 DF, UNK
     Route: 048
     Dates: start: 20110520, end: 20110603
  4. ALFAROL [Concomitant]
     Indication: HYPOCALCAEMIA
     Dosage: 0.25 ?G, UNK
     Route: 048
     Dates: start: 20110615
  5. LOXONIN [Concomitant]
     Indication: PYREXIA
     Dosage: 60 MG, UNK
     Route: 048
     Dates: start: 20110615
  6. INTRON A [Suspect]
     Indication: RENAL CELL CARCINOMA
     Dosage: 3 MIU, TIW
     Route: 058
     Dates: start: 20110520, end: 20110628
  7. CALCIUM CARBONATE [Concomitant]
     Indication: HYPOCALCAEMIA
     Dosage: 1500 MG, UNK
     Route: 048
     Dates: start: 20110615
  8. ZOMETA [Concomitant]
     Indication: METASTASES TO BONE
     Dosage: 4.0 MG, UNK
     Route: 042
     Dates: start: 20110526
  9. NEXAVAR [Suspect]
     Indication: RENAL CELL CARCINOMA
     Dosage: 800 MG, DAILY
     Route: 048

REACTIONS (2)
  - WHITE BLOOD CELL COUNT DECREASED [None]
  - PLATELET COUNT DECREASED [None]
